FAERS Safety Report 17025421 (Version 1)
Quarter: 2019Q4

REPORT INFORMATION
  Report Type: Spontaneous
  Country: US (occurrence: US)
  Receive Date: 20191112
  Receipt Date: 20191112
  Transmission Date: 20200122
  Serious: Yes (Other)
  Sender: FDA-Public Use
  Company Number: None

PATIENT
  Age: 75 Year
  Sex: Female
  Weight: 60.75 kg

DRUGS (1)
  1. GABAPENTIN 600 MG/DAY [Suspect]
     Active Substance: GABAPENTIN
     Indication: NEURALGIA
     Dosage: ?          QUANTITY:2 CAPSULE(S);?
     Route: 048

REACTIONS (1)
  - Alopecia [None]

NARRATIVE: CASE EVENT DATE: 20191110
